FAERS Safety Report 10039190 (Version 1)
Quarter: 2014Q1

REPORT INFORMATION
  Report Type: Report from Study
  Country: US (occurrence: US)
  Receive Date: 20140326
  Receipt Date: 20140326
  Transmission Date: 20141002
  Serious: Yes (Hospitalization, Other)
  Sender: FDA-Public Use
  Company Number: US-JNJFOC-20140310696

PATIENT
  Sex: Female
  Weight: 114 kg

DRUGS (9)
  1. REMICADE [Suspect]
     Indication: COLON CANCER
     Dosage: EVERY OTHER MONTH
     Route: 042
     Dates: start: 2005, end: 201403
  2. VALIUM [Concomitant]
     Indication: NEUROPATHY PERIPHERAL
     Route: 048
  3. ZOCOR [Concomitant]
     Indication: BLOOD CHOLESTEROL
     Route: 048
  4. LEXAPRO [Concomitant]
     Indication: DEPRESSION
     Route: 048
     Dates: start: 2013
  5. IMITREX [Concomitant]
     Indication: HEADACHE
     Route: 048
  6. BUDESONIDE [Concomitant]
     Indication: GASTROINTESTINAL DISORDER
     Route: 048
     Dates: start: 20140222
  7. TRAMADOL [Concomitant]
     Indication: BACK PAIN
     Route: 048
  8. ALBUTEROL [Concomitant]
     Indication: ASTHMA
     Route: 048
  9. PRO AIR [Concomitant]
     Indication: ASTHMA
     Route: 048

REACTIONS (8)
  - Renal failure [Not Recovered/Not Resolved]
  - Blood iron decreased [Recovered/Resolved]
  - Dehydration [Recovered/Resolved]
  - Ear pain [Not Recovered/Not Resolved]
  - Hearing impaired [Unknown]
  - Abnormal loss of weight [Not Recovered/Not Resolved]
  - Stress [Unknown]
  - Off label use [Unknown]
